FAERS Safety Report 19152618 (Version 1)
Quarter: 2021Q2

REPORT INFORMATION
  Report Type: Spontaneous
  Country: US (occurrence: US)
  Receive Date: 20210416
  Receipt Date: 20210416
  Transmission Date: 20210717
  Serious: Yes (Death)
  Sender: FDA-Public Use
  Company Number: None

PATIENT
  Age: 71 Year
  Sex: Female

DRUGS (22)
  1. ALLOPURINOL. [Concomitant]
     Active Substance: ALLOPURINOL
  2. AMOX?POT CLAVULANATE [Concomitant]
  3. IMITREX [Concomitant]
     Active Substance: SUMATRIPTAN SUCCINATE
  4. LETAIRIS [Suspect]
     Active Substance: AMBRISENTAN
     Indication: PULMONARY ARTERIAL HYPERTENSION
     Route: 048
  5. FUROSEMIDE. [Concomitant]
     Active Substance: FUROSEMIDE
  6. ADVIL [Concomitant]
     Active Substance: IBUPROFEN
  7. ELIQUIS [Concomitant]
     Active Substance: APIXABAN
  8. LORAZEPAM. [Concomitant]
     Active Substance: LORAZEPAM
  9. TYLENOL [Concomitant]
     Active Substance: ACETAMINOPHEN
  10. CRESTOR [Concomitant]
     Active Substance: ROSUVASTATIN CALCIUM
  11. BIOTIN [Concomitant]
     Active Substance: BIOTIN
  12. FERROUS SULFATE. [Concomitant]
     Active Substance: FERROUS SULFATE
  13. LOSARTAN. [Concomitant]
     Active Substance: LOSARTAN
  14. METOPROLOL TART [Concomitant]
     Active Substance: METOPROLOL TARTRATE
  15. EFFEXOR XR [Concomitant]
     Active Substance: VENLAFAXINE HYDROCHLORIDE
  16. LEVOTHYROXINE. [Concomitant]
     Active Substance: LEVOTHYROXINE
  17. TRAMADOL. [Concomitant]
     Active Substance: TRAMADOL
  18. PRILOSEC [Concomitant]
     Active Substance: OMEPRAZOLE MAGNESIUM
  19. SEROQUEL [Concomitant]
     Active Substance: QUETIAPINE FUMARATE
  20. TYVASO [Concomitant]
     Active Substance: TREPROSTINIL
  21. WELLBUTRIN [Concomitant]
     Active Substance: BUPROPION HYDROCHLORIDE
  22. REMODULIN [Concomitant]
     Active Substance: TREPROSTINIL

REACTIONS (1)
  - Death [None]
